FAERS Safety Report 10701064 (Version 2)
Quarter: 2015Q1

REPORT INFORMATION
  Report Type: Report from Study
  Country: BR (occurrence: BR)
  Receive Date: 20150109
  Receipt Date: 20150206
  Transmission Date: 20150721
  Serious: Yes (Hospitalization)
  Sender: FDA-Public Use
  Company Number: PHHY2015BR001867

PATIENT
  Sex: Male
  Weight: 62 kg

DRUGS (7)
  1. AZITROMICINA [Concomitant]
     Active Substance: AZITHROMYCIN DIHYDRATE
     Indication: ANTIINFLAMMATORY THERAPY
     Dosage: UNK OT, 3 TIMES PER WEEK
     Route: 065
     Dates: start: 2004
  2. ZOTEON [Suspect]
     Active Substance: TOBRAMYCIN
     Indication: PRODUCT USED FOR UNKNOWN INDICATION
     Route: 065
  3. PULMOZYME [Concomitant]
     Active Substance: DORNASE ALFA
     Indication: CYSTIC FIBROSIS
     Dosage: UNK OT, QD
     Route: 065
     Dates: start: 2006
  4. TOBRAMICINA//TOBRAMYCIN [Suspect]
     Active Substance: TOBRAMYCIN
     Indication: CYSTIC FIBROSIS
     Dosage: UNK OT, BID
     Route: 065
     Dates: start: 2002
  5. COLOMYCIN [Concomitant]
     Active Substance: COLISTIN
     Indication: CYSTIC FIBROSIS
     Dosage: UNK OT, BID
     Route: 065
     Dates: start: 20020425
  6. URSACOL [Concomitant]
     Active Substance: URSODIOL
     Indication: LIVER DISORDER
     Dosage: UNK OT, TID
     Route: 065
     Dates: start: 20130424
  7. CREON [Concomitant]
     Active Substance: PANCRELIPASE AMYLASE\PANCRELIPASE LIPASE\PANCRELIPASE PROTEASE
     Indication: GASTROINTESTINAL DISORDER
     Dosage: UNK OT, TEN TIMES A DAY
     Route: 065
     Dates: start: 19970129

REACTIONS (3)
  - Weight decreased [Not Recovered/Not Resolved]
  - Malaise [Unknown]
  - Drug hypersensitivity [Not Recovered/Not Resolved]
